FAERS Safety Report 8953496 (Version 2)
Quarter: 2013Q4

REPORT INFORMATION
  Report Type: Spontaneous
  Country: GB (occurrence: GB)
  Receive Date: 20121206
  Receipt Date: 20131008
  Transmission Date: 20140711
  Serious: Yes (Other)
  Sender: FDA-Public Use
  Company Number: GB-GLAXOSMITHKLINE-B0848947A

PATIENT
  Age: 28 Year
  Sex: Male
  Weight: 60.32 kg

DRUGS (11)
  1. LAMICTAL [Suspect]
     Indication: DEPRESSED MOOD
     Dosage: 175MG PER DAY
     Route: 048
     Dates: start: 20120901, end: 20121120
  2. LAMICTAL [Suspect]
     Indication: DEPRESSED MOOD
     Dosage: 300MG PER DAY
     Route: 048
  3. PROPANOL [Concomitant]
  4. DIAZEPAM [Concomitant]
  5. ZOLMITRIPTAN [Concomitant]
  6. DICLOFENAC [Concomitant]
  7. PARACETAMOL [Concomitant]
  8. CO-CODAMOL [Concomitant]
  9. DOMPERIDONE [Concomitant]
  10. COD LIVER OIL [Concomitant]
  11. MULTIVITAMIN [Concomitant]

REACTIONS (1)
  - Nightmare [Not Recovered/Not Resolved]
